FAERS Safety Report 10095993 (Version 1)
Quarter: 2014Q2

REPORT INFORMATION
  Report Type: Spontaneous
  Country: CA (occurrence: CA)
  Receive Date: 20140422
  Receipt Date: 20140422
  Transmission Date: 20141212
  Serious: Yes (Other)
  Sender: FDA-Public Use
  Company Number: CA-GLAXOSMITHKLINE-A1069552A

PATIENT
  Sex: Female

DRUGS (2)
  1. ADVAIR HFA [Suspect]
     Indication: ASTHMA
     Dosage: 2PUFF TWICE PER DAY
     Route: 065
     Dates: end: 20140326
  2. THEOPHYLLINE [Suspect]

REACTIONS (10)
  - Vision blurred [Recovering/Resolving]
  - Eye pain [Recovering/Resolving]
  - Paraesthesia [Recovering/Resolving]
  - Sialoadenitis [Recovering/Resolving]
  - Lymphadenitis [Recovering/Resolving]
  - Stomatitis [Recovering/Resolving]
  - Throat irritation [Recovering/Resolving]
  - Dysphonia [Recovering/Resolving]
  - Muscle twitching [Recovering/Resolving]
  - Fatigue [Recovering/Resolving]
